FAERS Safety Report 6975519-X (Version None)
Quarter: 2010Q3

REPORT INFORMATION
  Report Type: 
  Country: None (occurrence: None)
  Receive Date: 20100910
  Receipt Date: 20100901
  Transmission Date: 20110219
  Serious: Yes (Hospitalization)
  Sender: FDA-Public Use
  Company Number: US-BIOGENIDEC-2010BI030371

PATIENT
  Age: 62 Year
  Sex: Female
  Weight: 40 kg

DRUGS (4)
  1. AVONEX [Suspect]
     Indication: MULTIPLE SCLEROSIS
     Route: 030
     Dates: start: 20081209
  2. XANAX [Concomitant]
     Indication: PANIC ATTACK
     Route: 048
     Dates: start: 20070101
  3. XANAX [Concomitant]
     Indication: ANXIETY
     Route: 048
     Dates: start: 20070101
  4. XANAX [Concomitant]
     Indication: STRESS
     Route: 048
     Dates: start: 20070101

REACTIONS (7)
  - ABASIA [None]
  - DIZZINESS [None]
  - EUPHORIC MOOD [None]
  - HYPOTENSION [None]
  - MYALGIA [None]
  - SPINAL FRACTURE [None]
  - VOMITING [None]
